FAERS Safety Report 6580194-2 (Version None)
Quarter: 2010Q1

REPORT INFORMATION
  Report Type: 
  Country: None (occurrence: None)
  Receive Date: 20100212
  Receipt Date: 20100129
  Transmission Date: 20100710
  Serious: Yes (Hospitalization)
  Sender: FDA-Public Use
  Company Number: DE-WATSON-2010-01293

PATIENT
  Age: 72 Year
  Sex: Female
  Weight: 77 kg

DRUGS (10)
  1. AMLODIPINE BESYLATE [Suspect]
     Indication: HYPERTENSION
     Dosage: 5 MG, DAILY
     Route: 048
     Dates: start: 20080501
  2. FENTANYL-100 [Suspect]
     Indication: PAIN
     Dosage: 50 MCG, Q1H
     Route: 062
     Dates: start: 20070101
  3. CO-DIOVAN [Suspect]
     Indication: HYPERTENSION
     Dosage: 1 DF, DAILY (12.5MG/320MG)
     Route: 048
  4. MICTONORM [Suspect]
     Indication: MICTURITION URGENCY
     Dosage: 30 MG, DAILY
     Route: 048
  5. GODAMED                            /00002701/ [Concomitant]
     Indication: CAROTID ARTERY STENOSIS
     Dosage: 100 MG, DAILY
     Route: 048
  6. PANTOZOL                           /01263202/ [Concomitant]
     Indication: GASTRITIS PROPHYLAXIS
     Dosage: 40 MG, DAILY
     Route: 048
  7. PRESOMEN                           /00073001/ [Concomitant]
     Indication: OSTEOPOROSIS
     Dosage: 0.6 MG, DAILY
     Route: 048
  8. ALENDRONSAEURE [Concomitant]
     Indication: OSTEOPOROSIS
     Dosage: 70 MG, 1/WEEK
     Route: 048
     Dates: start: 20080901
  9. VIANI [Concomitant]
     Indication: ASTHMA
     Dosage: 1 DF, BID (50UG/250UG)
  10. CALCIMAGON-D3 [Concomitant]
     Indication: OSTEOPOROSIS
     Dosage: 1 DF, DAILY
     Route: 048
     Dates: start: 20080901

REACTIONS (1)
  - FAECALOMA [None]
